FAERS Safety Report 9007480 (Version 1)
Quarter: 2013Q1

REPORT INFORMATION
  Report Type: Spontaneous
  Country: US (occurrence: US)
  Receive Date: 20130111
  Receipt Date: 20130111
  Transmission Date: 20140127
  Serious: Yes (Hospitalization, Other)
  Sender: FDA-Public Use
  Company Number: US-009507513-2008SP014423

PATIENT
  Sex: Male

DRUGS (3)
  1. CLARITIN [Suspect]
     Dosage: 10 MG, ONCE
     Route: 048
  2. SINGULAIR [Suspect]
     Dosage: 3 DF, UNK
     Route: 048
  3. PREVACID [Suspect]
     Dosage: 4 DF, UNK
     Route: 048

REACTIONS (4)
  - Fatigue [Recovering/Resolving]
  - Somnolence [Recovering/Resolving]
  - Accidental overdose [Unknown]
  - Accidental exposure to product by child [Unknown]
